FAERS Safety Report 17046446 (Version 1)
Quarter: 2019Q4

REPORT INFORMATION
  Report Type: Spontaneous
  Country: GB (occurrence: GB)
  Receive Date: 20191119
  Receipt Date: 20191119
  Transmission Date: 20200122
  Serious: Yes (Other)
  Sender: FDA-Public Use
  Company Number: GB-AUROBINDO-AUR-APL-2019-073666

PATIENT
  Age: 59 Year
  Sex: Female
  Weight: 76.2 kg

DRUGS (4)
  1. CALCICHEW D3 [Concomitant]
     Active Substance: CALCIUM\CHOLECALCIFEROL
     Indication: PRODUCT USED FOR UNKNOWN INDICATION
     Dosage: UNK
     Route: 065
  2. MEFENAMIC ACID. [Concomitant]
     Active Substance: MEFENAMIC ACID
     Indication: PRODUCT USED FOR UNKNOWN INDICATION
     Dosage: UNK
     Route: 065
  3. LETROZOLE. [Concomitant]
     Active Substance: LETROZOLE
     Indication: PRODUCT USED FOR UNKNOWN INDICATION
     Dosage: UNK
     Route: 065
  4. AMLODIPINE [Suspect]
     Active Substance: AMLODIPINE BESYLATE
     Indication: HYPERTENSION
     Dosage: UNK, AS PRESCRIBED
     Route: 065
     Dates: start: 20170517, end: 20171020

REACTIONS (9)
  - Dizziness [Unknown]
  - Food aversion [Unknown]
  - Decreased appetite [Unknown]
  - Cough [Unknown]
  - Fatigue [Unknown]
  - Loss of consciousness [Unknown]
  - Pyrexia [Unknown]
  - Malaise [Recovered/Resolved]
  - Contusion [Unknown]
